FAERS Safety Report 9982070 (Version 1)
Quarter: 2014Q1

REPORT INFORMATION
  Report Type: Report from Study
  Country: US (occurrence: US)
  Receive Date: 20140307
  Receipt Date: 20140307
  Transmission Date: 20141002
  Serious: No
  Sender: FDA-Public Use
  Company Number: US-ABBVIE-13P-163-1177952-00

PATIENT
  Age: 59 Year
  Sex: Male

DRUGS (5)
  1. HUMIRA [Suspect]
     Indication: COLITIS ULCERATIVE
     Dates: start: 201309
  2. LISINOPRIL [Concomitant]
     Indication: HYPERTENSION
  3. VYTORIN [Concomitant]
     Indication: BLOOD CHOLESTEROL INCREASED
  4. INSULIN [Concomitant]
     Indication: TYPE 2 DIABETES MELLITUS
  5. ANTIACID [Concomitant]
     Indication: GASTROOESOPHAGEAL REFLUX DISEASE

REACTIONS (2)
  - Oedema peripheral [Recovering/Resolving]
  - Myalgia [Recovering/Resolving]
